FAERS Safety Report 6042110-1 (Version None)
Quarter: 2009Q1

REPORT INFORMATION
  Report Type: 
  Country: None (occurrence: None)
  Receive Date: 20090116
  Receipt Date: 20090107
  Transmission Date: 20090719
  Serious: Yes (Other)
  Sender: FDA-Public Use
  Company Number: PHEH2009US00644

PATIENT
  Sex: Male

DRUGS (8)
  1. ZOMETA [Suspect]
     Indication: PROSTATE CANCER
     Dosage: 4 MG, TIW
     Route: 042
     Dates: start: 20011001, end: 20040301
  2. DEXAMETHASONE TAB [Concomitant]
  3. COUMADIN [Concomitant]
  4. SOTALOL HCL [Concomitant]
  5. ZOCOR [Concomitant]
  6. ACTOS [Concomitant]
  7. EFFEXOR [Concomitant]
  8. VITAMIN E [Concomitant]

REACTIONS (3)
  - BONE DISORDER [None]
  - GINGIVITIS [None]
  - PULMONARY EMBOLISM [None]
